FAERS Safety Report 25540685 (Version 1)
Quarter: 2025Q3

REPORT INFORMATION
  Report Type: Spontaneous
  Country: CN (occurrence: CN)
  Receive Date: 20250710
  Receipt Date: 20250710
  Transmission Date: 20251021
  Serious: Yes (Life-Threatening, Other)
  Sender: TAKEDA
  Company Number: CN-TAKEDA-2025TUS062418

PATIENT
  Age: 73 Year
  Sex: Female
  Weight: 73 kg

DRUGS (1)
  1. ALBUMIN HUMAN [Suspect]
     Active Substance: ALBUMIN HUMAN
     Indication: Supplementation therapy
     Dosage: 20 GRAM, QD
     Dates: start: 20250610, end: 20250610

REACTIONS (1)
  - Anaphylactic shock [Recovering/Resolving]

NARRATIVE: CASE EVENT DATE: 20250610
